FAERS Safety Report 21403960 (Version 7)
Quarter: 2023Q1

REPORT INFORMATION
  Report Type: Report from Study
  Country: US (occurrence: US)
  Receive Date: 20221003
  Receipt Date: 20230228
  Transmission Date: 20230418
  Serious: Yes (Other)
  Sender: FDA-Public Use
  Company Number: US-NOVARTISPH-NVSC2022US222803

PATIENT
  Age: 81 Year
  Sex: Male

DRUGS (1)
  1. ENTRESTO [Suspect]
     Active Substance: SACUBITRIL\VALSARTAN
     Indication: Product used for unknown indication
     Dosage: 1 DOSAGE FORM, BID (97/103MG)
     Route: 048
     Dates: start: 20220926

REACTIONS (10)
  - Neuropathy peripheral [Unknown]
  - Memory impairment [Unknown]
  - Throat clearing [Unknown]
  - Productive cough [Unknown]
  - Fall [Unknown]
  - Abdominal pain upper [Unknown]
  - Neutrophil count decreased [Unknown]
  - Peroneal nerve palsy [Unknown]
  - Diarrhoea [Unknown]
  - Fatigue [Unknown]

NARRATIVE: CASE EVENT DATE: 20220928
